FAERS Safety Report 25771265 (Version 2)
Quarter: 2025Q4

REPORT INFORMATION
  Report Type: Report from Study
  Country: EU (occurrence: EU)
  Receive Date: 20250908
  Receipt Date: 20251011
  Transmission Date: 20260117
  Serious: Yes (Hospitalization)
  Sender: ABBVIE
  Company Number: EU-ABBVIE-6448205

PATIENT
  Sex: Female

DRUGS (1)
  1. FOSCARBIDOPA\FOSLEVODOPA [Suspect]
     Active Substance: FOSCARBIDOPA\FOSLEVODOPA
     Indication: Parkinson^s disease
     Dosage: SD: 0.50ML; CRN: 0.40ML/H; CR: 0.42ML/H; CRH: 0.38ML/H; ED: 0.20ML
     Route: 058
     Dates: start: 20240416, end: 20250826

REACTIONS (3)
  - Cognitive disorder [Unknown]
  - Hallucination [Unknown]
  - Drug ineffective [Unknown]
